FAERS Safety Report 9715751 (Version 1)
Quarter: 2013Q4

REPORT INFORMATION
  Report Type: Spontaneous
  Country: US (occurrence: US)
  Receive Date: 20131127
  Receipt Date: 20131127
  Transmission Date: 20140711
  Serious: No
  Sender: FDA-Public Use
  Company Number: US-BAYER-2013-144948

PATIENT
  Age: 18 Year
  Sex: Female

DRUGS (3)
  1. MAGNEVIST [Suspect]
     Indication: SCAN BRAIN
     Dosage: 9 ML, ONCE
     Route: 042
     Dates: start: 20131125, end: 20131125
  2. MAGNEVIST [Suspect]
     Indication: HEADACHE
  3. MAGNEVIST [Suspect]
     Indication: VOMITING

REACTIONS (1)
  - Vomiting [None]
